FAERS Safety Report 5989418 (Version 35)
Quarter: 2014Q1

REPORT INFORMATION
  Report Type: Spontaneous
  Country: US (occurrence: US)
  Receive Date: 20060223
  Receipt Date: 20140109
  Transmission Date: 20141002
  Serious: Yes (Hospitalization, Other)
  Sender: FDA-Public Use
  Company Number: PHEH2006US02049

PATIENT
  Age: 51 Year
  Sex: Female
  Weight: 89.34 kg

DRUGS (21)
  1. LIPITOR [Concomitant]
     Dosage: 10 MG, QD
     Route: 048
  2. PREMARIN [Concomitant]
     Dosage: 0.625 MG, QD
     Route: 048
  3. HYDROCHLOROTHIAZIDE [Concomitant]
     Dosage: 25 MG, QD
     Route: 048
  4. XANAX [Concomitant]
  5. ANASTROZOLE [Concomitant]
     Dosage: 1 MG, QD
  6. TAMOXIFEN [Concomitant]
  7. POTASSIUM [Concomitant]
  8. ASA [Concomitant]
  9. GEMCITABINE [Concomitant]
  10. TAXOL [Concomitant]
  11. CELEXA [Concomitant]
  12. PERCOCET [Concomitant]
  13. ARIMIDEX ^ASTRAZENECA^ [Concomitant]
  14. METOPROLOL [Concomitant]
  15. ASPIRIN [Concomitant]
  16. MULTIVITAMIN [Concomitant]
  17. IBUPROFEN [Concomitant]
  18. FASLODEX [Concomitant]
  19. AREDIA [Suspect]
     Route: 042
  20. ZOMETA [Suspect]
     Route: 042
     Dates: end: 20051213
  21. CHEMOTHERAPEUTICS NOS [Suspect]

REACTIONS (126)
  - Pneumonia [Unknown]
  - Pleural effusion [Unknown]
  - Chills [Unknown]
  - Dyspnoea [Unknown]
  - Pulmonary congestion [Unknown]
  - Wheezing [Unknown]
  - X-ray abnormal [Unknown]
  - Ovarian mass [Unknown]
  - Computerised tomogram abdomen abnormal [Unknown]
  - Chest pain [Unknown]
  - Osteonecrosis of jaw [Unknown]
  - Pain in jaw [Unknown]
  - Bone disorder [Unknown]
  - Metastatic neoplasm [Unknown]
  - Positron emission tomogram abnormal [Unknown]
  - Metastases to bone [Unknown]
  - Computerised tomogram thorax abnormal [Unknown]
  - Large intestine polyp [Unknown]
  - Change of bowel habit [Unknown]
  - Constipation [Unknown]
  - Colonoscopy abnormal [Unknown]
  - Diverticulum intestinal [Unknown]
  - Osteopenia [Unknown]
  - Haemorrhoids [Unknown]
  - Hypoaesthesia [Unknown]
  - Middle insomnia [Unknown]
  - Pain [Unknown]
  - Local swelling [Unknown]
  - Blood pressure increased [Unknown]
  - Heart rate increased [Unknown]
  - Cough [Unknown]
  - Carpal tunnel syndrome [Unknown]
  - Urinary tract infection [Unknown]
  - Bronchitis [Unknown]
  - Haematuria [Unknown]
  - Pneumothorax [Unknown]
  - Chylothorax [Unknown]
  - Aspiration pleural cavity [Unknown]
  - Pulmonary embolism [Unknown]
  - Acute coronary syndrome [Unknown]
  - Osteoarthritis [Unknown]
  - Hypercholesterolaemia [Unknown]
  - Intervertebral disc degeneration [Unknown]
  - Back pain [Unknown]
  - Sinusitis [Unknown]
  - Tinnitus [Unknown]
  - Rectal haemorrhage [Unknown]
  - Hypertension [Unknown]
  - Colitis [Unknown]
  - Inflammation [Unknown]
  - Metastases to ovary [Unknown]
  - Breast cellulitis [Unknown]
  - Abdominal hernia [Unknown]
  - Incisional hernia [Unknown]
  - Ovarian adenoma [Unknown]
  - Amnesia [Unknown]
  - Blood glucose increased [Unknown]
  - Headache [Unknown]
  - Intervertebral disc protrusion [Unknown]
  - Ovarian enlargement [Unknown]
  - Spinal osteoarthritis [Unknown]
  - Hyperlipidaemia [Unknown]
  - Sinus tachycardia [Unknown]
  - Muscle strain [Unknown]
  - Neuropathy peripheral [Unknown]
  - Spinal column stenosis [Unknown]
  - Intervertebral disc space narrowing [Unknown]
  - Paraesthesia [Unknown]
  - Pulmonary mass [Unknown]
  - Atelectasis [Unknown]
  - Pleural fibrosis [Unknown]
  - Atrophic vulvovaginitis [Unknown]
  - Cardiomegaly [Unknown]
  - Depression [Unknown]
  - Fatigue [Unknown]
  - Metastases to pleura [Unknown]
  - Exostosis [Unknown]
  - Osteolysis [Unknown]
  - Hypertrophy [Unknown]
  - Arthritis [Unknown]
  - Radiculopathy [Unknown]
  - Tendonitis [Unknown]
  - Herpes zoster [Recovering/Resolving]
  - Osteosclerosis [Unknown]
  - Bursitis [Recovering/Resolving]
  - Nausea [Unknown]
  - Hyperhidrosis [Unknown]
  - Central obesity [Unknown]
  - Lymphadenopathy [Unknown]
  - Gingival pain [Unknown]
  - Tooth loss [Unknown]
  - Ear pain [Unknown]
  - Myalgia [Unknown]
  - Vomiting [Recovering/Resolving]
  - Cardiac failure congestive [Unknown]
  - Adrenal disorder [Unknown]
  - Laryngitis [Unknown]
  - Dysuria [Unknown]
  - Pollakiuria [Unknown]
  - Varicose vein [Unknown]
  - Left ventricular hypertrophy [Unknown]
  - Diastolic dysfunction [Unknown]
  - Aortic arteriosclerosis [Unknown]
  - Mitral valve calcification [Unknown]
  - Tricuspid valve incompetence [Unknown]
  - Pulmonary valve incompetence [Unknown]
  - Cold sweat [Unknown]
  - Pyrexia [Unknown]
  - Dysphonia [Recovering/Resolving]
  - Discomfort [Recovering/Resolving]
  - Gastrooesophageal reflux disease [Unknown]
  - Metastases to adrenals [Unknown]
  - Osteoporosis [Unknown]
  - Asthenia [Unknown]
  - Oedema peripheral [Unknown]
  - Cervical spine flattening [Unknown]
  - Chronic obstructive pulmonary disease [Unknown]
  - Interstitial lung disease [Unknown]
  - Musculoskeletal pain [Unknown]
  - Palmar-plantar erythrodysaesthesia syndrome [Unknown]
  - Bone pain [Unknown]
  - Diarrhoea [Unknown]
  - Rash [Unknown]
  - Gastroenteritis [Unknown]
  - Dehydration [Unknown]
  - Dyspepsia [Unknown]
